FAERS Safety Report 6209325-0 (Version None)
Quarter: 2009Q2

REPORT INFORMATION
  Report Type: 
  Country: None (occurrence: None)
  Receive Date: 20090529
  Receipt Date: 20090514
  Transmission Date: 20091009
  Serious: Yes (Other)
  Sender: FDA-Public Use
  Company Number: TR-GENENTECH-283826

PATIENT

DRUGS (7)
  1. ACTIVASE [Suspect]
     Indication: ACUTE MYOCARDIAL INFARCTION
     Dosage: 15 MG, UNK
     Route: 040
  2. ACTIVASE [Suspect]
     Dosage: 0.75 MG/KG, UNK
     Route: 042
  3. ACTIVASE [Suspect]
     Dosage: 0.50 MG/KG, UNK
     Route: 042
  4. ENOXAPARIN SODIUM [Suspect]
     Indication: ACUTE MYOCARDIAL INFARCTION
     Dosage: 30 MG, UNK
     Route: 058
  5. ENOXAPARIN SODIUM [Suspect]
     Dosage: 1 MG/KG, Q12H
     Route: 058
  6. ASPIRIN [Suspect]
     Indication: ACUTE MYOCARDIAL INFARCTION
     Dosage: 300 MG, UNK
  7. CLOPIDOGREL [Suspect]
     Indication: ACUTE MYOCARDIAL INFARCTION
     Dosage: 75 MG, UNK

REACTIONS (3)
  - INTRACARDIAC THROMBUS [None]
  - VENTRICULAR FIBRILLATION [None]
  - VENTRICULAR TACHYCARDIA [None]
